FAERS Safety Report 9893153 (Version 6)
Quarter: 2014Q2

REPORT INFORMATION
  Report Type: Report from Study
  Country: BE (occurrence: BE)
  Receive Date: 20140213
  Receipt Date: 20140616
  Transmission Date: 20141212
  Serious: Yes (Hospitalization)
  Sender: FDA-Public Use
  Company Number: BE-ROCHE-1347749

PATIENT
  Age: 44 Year
  Sex: Female
  Weight: 83.6 kg

DRUGS (2)
  1. TRASTUZUMAB EMTANSINE [Suspect]
     Indication: BREAST CANCER
     Dosage: LAST DOSE PRIOR TO SAE WAS 20/DEC/2013
     Route: 042
     Dates: start: 20130412, end: 20140131
  2. FELDENE [Concomitant]
     Route: 065
     Dates: start: 20130412

REACTIONS (1)
  - Haemorrhage intracranial [Recovered/Resolved]
